FAERS Safety Report 6515618-X (Version None)
Quarter: 2009Q4

REPORT INFORMATION
  Report Type: 
  Country: None (occurrence: None)
  Receive Date: 20091223
  Receipt Date: 20091218
  Transmission Date: 20100525
  Serious: Yes (Hospitalization)
  Sender: FDA-Public Use
  Company Number: DE-WYE-G03967709

PATIENT
  Sex: Female
  Weight: 55 kg

DRUGS (2)
  1. TREVILOR RETARD [Suspect]
     Indication: ANXIETY DISORDER
     Route: 048
     Dates: start: 20040801, end: 20090101
  2. TREVILOR RETARD [Suspect]
     Route: 048
     Dates: start: 20090101

REACTIONS (6)
  - CERVICAL INCOMPETENCE [None]
  - DRUG EXPOSURE DURING PREGNANCY [None]
  - GLUCOSE TOLERANCE IMPAIRED IN PREGNANCY [None]
  - HELLP SYNDROME [None]
  - PREMATURE LABOUR [None]
  - URINARY TRACT DISORDER [None]
